FAERS Safety Report 8418881-3 (Version None)
Quarter: 2012Q2

REPORT INFORMATION
  Report Type: 
  Country: None (occurrence: None)
  Receive Date: 20120330
  Receipt Date: 20120518
  Transmission Date: 20120825
  Serious: Yes (Hospitalization)
  Sender: FDA-Public Use
  Company Number: WAES 1204GBR00037

PATIENT
  Age: 39 Year
  Sex: Female

DRUGS (11)
  1. HYZAAR [Suspect]
  2. HYZAAR [Suspect]
  3. HYZAAR [Suspect]
     Indication: HYPERTENSION
     Dosage: 100-25 MG/DAILY 50-12.5 MG/DAILY
     Route: 048
     Dates: start: 20110905, end: 20111004
  4. HYZAAR [Suspect]
     Indication: HYPERTENSION
     Dosage: 100-25 MG/DAILY 50-12.5 MG/DAILY
     Route: 048
     Dates: start: 20111004, end: 20111118
  5. HYZAAR [Suspect]
     Indication: HYPERTENSION
     Dosage: 100-25 MG/DAILY 50-12.5 MG/DAILY
     Route: 048
     Dates: start: 20111222, end: 20120312
  6. HYZAAR [Suspect]
     Indication: HYPERTENSION
     Dosage: 100-25 MG/DAILY 50-12.5 MG/DAILY
     Route: 048
     Dates: start: 20120213, end: 20120404
  7. HYZAAR [Suspect]
  8. HYZAAR [Suspect]
  9. HYZAAR [Suspect]
  10. HYZAAR [Suspect]
  11. HYZAAR [Suspect]

REACTIONS (1)
  - IDIOPATHIC THROMBOCYTOPENIC PURPURA [None]
